FAERS Safety Report 8073669-0 (Version None)
Quarter: 2012Q1

REPORT INFORMATION
  Report Type: 
  Country: None (occurrence: None)
  Receive Date: 20120126
  Receipt Date: 20120113
  Transmission Date: 20120608
  Serious: Yes (Hospitalization)
  Sender: FDA-Public Use
  Company Number: US-ROCHE-1008626

PATIENT
  Sex: Male

DRUGS (12)
  1. ISOSORBIDE MONONITRATE [Concomitant]
  2. MYCOPHENOLATE MOFETIL (CELLCEPT) [Suspect]
     Indication: RENAL TRANSPLANT
     Dates: start: 20070723
  3. FUROSEMIDE [Concomitant]
     Dates: start: 20110711
  4. HYDRALAZINE HCL [Concomitant]
  5. WARFARIN SODIUM [Suspect]
     Indication: RENAL TRANSPLANT
  6. PERCOCET [Concomitant]
  7. CLONIDINE HCL [Concomitant]
  8. LIPITOR [Concomitant]
  9. METOPROLOL SUCCINATE [Concomitant]
  10. KLOR-CON [Concomitant]
  11. CYCLOSPORINE [Suspect]
     Indication: RENAL TRANSPLANT
     Dates: start: 20110218
  12. PREDNISONE TAB [Suspect]
     Indication: RENAL TRANSPLANT
     Dates: start: 20090123

REACTIONS (7)
  - CHEST PAIN [None]
  - CARDIAC FAILURE CONGESTIVE [None]
  - PNEUMONIA [None]
  - PYELONEPHRITIS [None]
  - VASCULITIS [None]
  - ISCHAEMIC STROKE [None]
  - MUSCLE HAEMORRHAGE [None]
